FAERS Safety Report 11949574 (Version 4)
Quarter: 2016Q1

REPORT INFORMATION
  Report Type: Report from Study
  Country: DE (occurrence: DE)
  Receive Date: 20160125
  Receipt Date: 20160226
  Transmission Date: 20160526
  Serious: Yes (Death, Hospitalization, Other)
  Sender: FDA-Public Use
  Company Number: PHHY2016DE008834

PATIENT
  Sex: Female
  Weight: 73 kg

DRUGS (15)
  1. RAMIPRIL. [Concomitant]
     Active Substance: RAMIPRIL
     Indication: PRODUCT USED FOR UNKNOWN INDICATION
     Dosage: 05 MG, QD
     Route: 065
     Dates: start: 201307
  2. DUROGESIC [Concomitant]
     Active Substance: FENTANYL
     Indication: PRODUCT USED FOR UNKNOWN INDICATION
     Dosage: 100 UG, UNK (EVERY 3 DAYS)
     Route: 065
     Dates: start: 201307
  3. ZOMETA [Concomitant]
     Active Substance: ZOLEDRONIC ACID
     Indication: PRODUCT USED FOR UNKNOWN INDICATION
     Dosage: 4 MG, QMO
     Route: 065
     Dates: start: 20110706
  4. AFINITOR [Suspect]
     Active Substance: EVEROLIMUS
     Indication: BREAST CANCER METASTATIC
     Dosage: 10 MG, QD
     Route: 048
     Dates: start: 20130903, end: 20130912
  5. METFORMIN [Concomitant]
     Active Substance: METFORMIN HYDROCHLORIDE
     Indication: PRODUCT USED FOR UNKNOWN INDICATION
     Dosage: UNK UNK, QD (ACCORDING TO BLOOD SUGAR)
     Route: 065
     Dates: start: 201307
  6. VOLTAREN//DICLOFENAC SODIUM [Concomitant]
     Indication: PRODUCT USED FOR UNKNOWN INDICATION
     Dosage: UNK UNK, QD
     Route: 065
     Dates: start: 201307
  7. FOLICOMBIN [Concomitant]
     Indication: PRODUCT USED FOR UNKNOWN INDICATION
     Dosage: UNK UNK, QD
     Route: 065
     Dates: start: 201307
  8. XGEVA [Concomitant]
     Active Substance: DENOSUMAB
     Indication: PRODUCT USED FOR UNKNOWN INDICATION
     Dosage: 120 MG, QMO
     Route: 065
     Dates: start: 20110706
  9. AFINITOR [Suspect]
     Active Substance: EVEROLIMUS
     Dosage: 10 MG, QD
     Route: 048
     Dates: start: 20130919, end: 20130920
  10. AFINITOR [Suspect]
     Active Substance: EVEROLIMUS
     Dosage: 05 MG, QD
     Route: 048
     Dates: start: 20140107, end: 20140730
  11. CAELYX [Suspect]
     Active Substance: DOXORUBICIN HYDROCHLORIDE
     Indication: PRODUCT USED FOR UNKNOWN INDICATION
     Route: 065
  12. METOBETA [Concomitant]
     Indication: PRODUCT USED FOR UNKNOWN INDICATION
     Dosage: 50 MG, QD
     Route: 065
     Dates: start: 201307
  13. AFINITOR [Suspect]
     Active Substance: EVEROLIMUS
     Dosage: 05 MG, QD
     Route: 048
     Dates: start: 20131002, end: 20131223
  14. PANTOZOL [Concomitant]
     Active Substance: PANTOPRAZOLE SODIUM
     Indication: PRODUCT USED FOR UNKNOWN INDICATION
     Dosage: 40 MG, QD
     Route: 065
     Dates: start: 201307
  15. EXEMESTANE. [Concomitant]
     Active Substance: EXEMESTANE
     Indication: BREAST CANCER METASTATIC
     Dosage: 25 MG, QD
     Route: 048
     Dates: start: 20130903, end: 20140730

REACTIONS (38)
  - Dyspnoea exertional [Unknown]
  - Oedema peripheral [Unknown]
  - Atrial flutter [Unknown]
  - Cardiac murmur [Unknown]
  - Aortic valve disease [Unknown]
  - Aortic valve stenosis [Unknown]
  - Klebsiella test positive [Recovered/Resolved]
  - Biliary dilatation [Unknown]
  - Weight decreased [Unknown]
  - Left atrial dilatation [Unknown]
  - General physical health deterioration [Unknown]
  - Pancreatic atrophy [Unknown]
  - Degenerative mitral valve disease [Unknown]
  - Atrial fibrillation [Unknown]
  - Aortic dilatation [Unknown]
  - Malignant neoplasm progression [Fatal]
  - Left ventricular hypertrophy [Unknown]
  - Aortic valve incompetence [Unknown]
  - Faecaloma [Unknown]
  - Aortic calcification [Unknown]
  - Gamma-glutamyltransferase increased [Unknown]
  - Nausea [Unknown]
  - Cardiac failure [Unknown]
  - Mitral valve calcification [Unknown]
  - Fatigue [Unknown]
  - Pancreatic steatosis [Unknown]
  - Toxicity to various agents [Unknown]
  - Bladder mass [Unknown]
  - Left ventricular dysfunction [Unknown]
  - Aortic arteriosclerosis [Unknown]
  - Pulmonary congestion [Unknown]
  - Haemoglobin decreased [Unknown]
  - C-reactive protein increased [Unknown]
  - Hepatomegaly [Unknown]
  - Carotid arteriosclerosis [Unknown]
  - Pleural effusion [Unknown]
  - Mitral valve incompetence [Unknown]
  - Nephrocalcinosis [Unknown]

NARRATIVE: CASE EVENT DATE: 201511
